FAERS Safety Report 21237848 (Version 58)
Quarter: 2025Q3

REPORT INFORMATION
  Report Type: Report from Study
  Country: US (occurrence: US)
  Receive Date: 20220822
  Receipt Date: 20250903
  Transmission Date: 20251021
  Serious: Yes (Hospitalization, Other)
  Sender: TAKEDA
  Company Number: US-PAREXEL-2021-KAM-US003628

PATIENT
  Age: 65 Year
  Sex: Female
  Weight: 64 kg

DRUGS (55)
  1. GLASSIA [Suspect]
     Active Substance: .ALPHA.1-PROTEINASE INHIBITOR HUMAN
     Indication: Alpha-1 antitrypsin deficiency
     Dosage: 60 MILLIGRAM/KILOGRAM, 1/WEEK
  2. GLASSIA [Suspect]
     Active Substance: .ALPHA.1-PROTEINASE INHIBITOR HUMAN
  3. EPINEPHRINE [Concomitant]
     Active Substance: EPINEPHRINE
  4. LEVOTHYROXINE [Concomitant]
     Active Substance: LEVOTHYROXINE
  5. CLORAZEPATE DIPOTASSIUM [Concomitant]
     Active Substance: CLORAZEPATE DIPOTASSIUM
  6. ACETAMINOPHEN\HYDROCODONE [Concomitant]
     Active Substance: ACETAMINOPHEN\HYDROCODONE
  7. FOLIC ACID [Concomitant]
     Active Substance: FOLIC ACID
  8. SODIUM CHLORIDE [Concomitant]
     Active Substance: SODIUM CHLORIDE
  9. BREZTRI [Concomitant]
     Active Substance: BUDESONIDE\FORMOTEROL\GLYCOPYRROLATE
  10. ISOSORBIDE DINITRATE [Concomitant]
     Active Substance: ISOSORBIDE DINITRATE
  11. PROAIR RESPICLICK [Concomitant]
     Active Substance: ALBUTEROL SULFATE
  12. SULFASALAZINE [Concomitant]
     Active Substance: SULFASALAZINE
  13. INFLIXIMAB [Concomitant]
     Active Substance: INFLIXIMAB
  14. BUPROPION [Concomitant]
     Active Substance: BUPROPION
  15. CLOPIDOGREL [Concomitant]
     Active Substance: CLOPIDOGREL BISULFATE
  16. B active [Concomitant]
  17. LIDOCAINE [Concomitant]
     Active Substance: LIDOCAINE
  18. LINZESS [Concomitant]
     Active Substance: LINACLOTIDE
  19. METOPROLOL SUCCINATE [Concomitant]
     Active Substance: METOPROLOL SUCCINATE
  20. MUCINEX [Concomitant]
     Active Substance: GUAIFENESIN
  21. NITROGLYCERIN [Concomitant]
     Active Substance: NITROGLYCERIN
  22. METHOTREXATE [Concomitant]
     Active Substance: METHOTREXATE
  23. ATORVASTATIN CALCIUM [Concomitant]
     Active Substance: ATORVASTATIN CALCIUM
  24. ASPIRIN [Concomitant]
     Active Substance: ASPIRIN
  25. OXYGEN [Concomitant]
     Active Substance: OXYGEN
  26. IRON [Concomitant]
     Active Substance: IRON
  27. DIPHENHYDRAMINE HYDROCHLORIDE [Concomitant]
     Active Substance: DIPHENHYDRAMINE HYDROCHLORIDE
  28. KENALOG [Concomitant]
     Active Substance: TRIAMCINOLONE ACETONIDE
  29. ESCITALOPRAM OXALATE [Concomitant]
     Active Substance: ESCITALOPRAM OXALATE
  30. ALEVE [Concomitant]
     Active Substance: NAPROXEN SODIUM
  31. RANEXA [Concomitant]
     Active Substance: RANOLAZINE
  32. LORATADINE [Concomitant]
     Active Substance: LORATADINE
     Indication: Product used for unknown indication
  33. DIPHENHYDRAMINE [Concomitant]
     Active Substance: DIPHENHYDRAMINE
  34. TIROSINT [Concomitant]
     Active Substance: LEVOTHYROXINE SODIUM
  35. AMLODIPINE BESYLATE [Concomitant]
     Active Substance: AMLODIPINE BESYLATE
  36. B12 active [Concomitant]
  37. ALBUTEROL SULFATE [Concomitant]
     Active Substance: ALBUTEROL SULFATE
  38. METOPROLOL [Concomitant]
     Active Substance: METOPROLOL
  39. ZITHROMAX [Concomitant]
     Active Substance: AZITHROMYCIN DIHYDRATE
  40. ATORVASTATIN [Concomitant]
     Active Substance: ATORVASTATIN
  41. ALBUTEROL [Concomitant]
     Active Substance: ALBUTEROL
  42. ACETAMINOPHEN [Concomitant]
     Active Substance: ACETAMINOPHEN
  43. SIMPONI ARIA [Concomitant]
     Active Substance: GOLIMUMAB
  44. REQUIP [Concomitant]
     Active Substance: ROPINIROLE HYDROCHLORIDE
  45. SYMBICORT [Concomitant]
     Active Substance: BUDESONIDE\FORMOTEROL FUMARATE DIHYDRATE
  46. POTASSIUM CHLORIDE [Concomitant]
     Active Substance: POTASSIUM CHLORIDE
  47. CLINDAMYCIN HYDROCHLORIDE [Concomitant]
     Active Substance: CLINDAMYCIN HYDROCHLORIDE
  48. DOXYCYCLINE HYCLATE [Concomitant]
     Active Substance: DOXYCYCLINE HYCLATE
  49. PREDNISONE [Concomitant]
     Active Substance: PREDNISONE
  50. ESCITALOPRAM [Concomitant]
     Active Substance: ESCITALOPRAM OXALATE
  51. OXYCONTIN [Concomitant]
     Active Substance: OXYCODONE HYDROCHLORIDE
  52. FAMOTIDINE [Concomitant]
     Active Substance: FAMOTIDINE
  53. BENZONATATE [Concomitant]
     Active Substance: BENZONATATE
  54. OHTUVAYRE [Concomitant]
     Active Substance: ENSIFENTRINE
  55. PROTONIX [Concomitant]
     Active Substance: PANTOPRAZOLE SODIUM

REACTIONS (59)
  - Diverticulitis [Unknown]
  - Coronary artery stenosis [Unknown]
  - Influenza [Unknown]
  - Pneumonia [Unknown]
  - Tachycardia [Unknown]
  - Pneumonia fungal [Unknown]
  - Cardiac disorder [Unknown]
  - Lumbar vertebral fracture [Unknown]
  - Postoperative wound infection [Unknown]
  - Abdominal pain [Unknown]
  - Pain in extremity [Unknown]
  - Erythema [Unknown]
  - Skin abrasion [Unknown]
  - Productive cough [Unknown]
  - COVID-19 [Unknown]
  - Pain [Unknown]
  - Neck pain [Unknown]
  - Fall [Unknown]
  - Contusion [Unknown]
  - Dry mouth [Unknown]
  - Arthralgia [Unknown]
  - Dental caries [Unknown]
  - Stress [Unknown]
  - Dysphagia [Unknown]
  - Peripheral swelling [Unknown]
  - Oral contusion [Unknown]
  - Constipation [Unknown]
  - Ligament sprain [Unknown]
  - Respiratory tract infection [Unknown]
  - Respiratory tract congestion [Unknown]
  - Obstruction [Unknown]
  - Seasonal allergy [Unknown]
  - Post procedural complication [Unknown]
  - Balance disorder [Unknown]
  - Rib fracture [Unknown]
  - Limb injury [Unknown]
  - Road traffic accident [Unknown]
  - Wrist fracture [Unknown]
  - Joint swelling [Unknown]
  - Wheezing [Unknown]
  - Incorrect drug administration rate [Unknown]
  - Product dose omission issue [Unknown]
  - Brain fog [Unknown]
  - Mass [Unknown]
  - Hand fracture [Unknown]
  - Chest pain [Unknown]
  - Hypoaesthesia [Unknown]
  - Diarrhoea [Unknown]
  - Lung disorder [Unknown]
  - Chest discomfort [Unknown]
  - Back pain [Not Recovered/Not Resolved]
  - Cough [Recovering/Resolving]
  - Fatigue [Unknown]
  - Dyspnoea [Unknown]
  - Upper respiratory tract infection [Unknown]
  - Dizziness [Unknown]
  - Nausea [Unknown]
  - Lymphadenopathy [Unknown]
  - Headache [Unknown]

NARRATIVE: CASE EVENT DATE: 20220123
